FAERS Safety Report 21042921 (Version 2)
Quarter: 2022Q3

REPORT INFORMATION
  Report Type: Report from Study
  Country: TW (occurrence: None)
  Receive Date: 20220705
  Receipt Date: 20220713
  Transmission Date: 20221027
  Serious: Yes (Hospitalization)
  Sender: FDA-Public Use
  Company Number: TW-ROCHE-3127120

PATIENT
  Age: 47 Year
  Sex: Male

DRUGS (10)
  1. ATEZOLIZUMAB [Suspect]
     Active Substance: ATEZOLIZUMAB
     Indication: Chronic hepatitis B
     Dosage: DATE OF LAST ADMINISTRATION BEFORE SAE OCCURRED 08/JUN/2022
     Route: 041
     Dates: start: 20220518
  2. ATEZOLIZUMAB [Suspect]
     Active Substance: ATEZOLIZUMAB
     Indication: Hepatocellular carcinoma
  3. BEVACIZUMAB [Suspect]
     Active Substance: BEVACIZUMAB
     Indication: Hepatocellular carcinoma
     Dosage: DATE OF LAST ADMINISTRATION BEFORE SAE OCCURRED 08/JUN/2022
     Route: 042
     Dates: start: 20220518
  4. BEVACIZUMAB [Suspect]
     Active Substance: BEVACIZUMAB
     Indication: Chronic hepatitis B
  5. ENTECAVIR [Concomitant]
     Active Substance: ENTECAVIR
     Indication: Chronic hepatitis B
     Route: 048
  6. FENTANYL TRANSDERMAL SYSTEM [Concomitant]
     Active Substance: FENTANYL
     Route: 062
  7. MORPHINE SULFATE [Concomitant]
     Active Substance: MORPHINE SULFATE
     Route: 048
  8. DEXLANSOPRAZOLE [Concomitant]
     Active Substance: DEXLANSOPRAZOLE
     Route: 048
  9. METHOCARBAMOL [Concomitant]
     Active Substance: METHOCARBAMOL
     Route: 048
  10. METHYLCOBALAMIN [Concomitant]
     Active Substance: METHYLCOBALAMIN
     Route: 048

REACTIONS (2)
  - Pyrexia [Recovered/Resolved with Sequelae]
  - Stevens-Johnson syndrome [Recovered/Resolved with Sequelae]

NARRATIVE: CASE EVENT DATE: 20220615
